FAERS Safety Report 8835339 (Version 2)
Quarter: 2012Q4

REPORT INFORMATION
  Report Type: Report from Study
  Country: FR (occurrence: FR)
  Receive Date: 20121011
  Receipt Date: 20121105
  Transmission Date: 20130627
  Serious: Yes (Hospitalization)
  Sender: FDA-Public Use
  Company Number: FR-ABBOTT-12P-056-0990062-00

PATIENT
  Age: 37 Year
  Sex: Female

DRUGS (2)
  1. HUMIRA [Suspect]
     Indication: CROHN^S DISEASE
     Dosage: Induction: 160mg (baseline)/80 mg (week 2)
     Route: 058
     Dates: start: 20080609, end: 20090316
  2. HUMIRA [Suspect]
     Route: 058
     Dates: start: 20110115, end: 20110401

REACTIONS (1)
  - Intestinal anastomosis complication [Unknown]
